FAERS Safety Report 24131464 (Version 1)
Quarter: 2024Q3

REPORT INFORMATION
  Report Type: Spontaneous
  Country: BR (occurrence: BR)
  Receive Date: 20240724
  Receipt Date: 20240724
  Transmission Date: 20241016
  Serious: Yes (Other)
  Sender: AMGEN
  Company Number: BR-AMGEN-BRASP2024144208

PATIENT
  Age: 85 Year
  Sex: Female

DRUGS (1)
  1. CINACALCET HYDROCHLORIDE [Suspect]
     Active Substance: CINACALCET HYDROCHLORIDE
     Indication: Product used for unknown indication
     Dosage: UNK, CONTINUING (CONTINUOUS USE)
     Route: 065

REACTIONS (2)
  - Dementia Alzheimer^s type [Unknown]
  - Parathyroid disorder [Unknown]
